FAERS Safety Report 4724215-8 (Version None)
Quarter: 2005Q3

REPORT INFORMATION
  Report Type: 
  Country: None (occurrence: None)
  Receive Date: 20050726
  Receipt Date: 20050712
  Transmission Date: 20060218
  Serious: Yes (Hospitalization, Other)
  Sender: FDA-Public Use
  Company Number: PHBS2005NZ10040

PATIENT
  Age: 51 Year
  Sex: Male

DRUGS (4)
  1. CLOZARIL [Suspect]
     Dosage: 400 MG/D
     Route: 048
     Dates: start: 20040524, end: 20041111
  2. CLOZARIL [Suspect]
     Dosage: 400 MG/D
     Route: 048
     Dates: start: 20050113, end: 20050710
  3. CLOZARIL [Suspect]
     Dosage: NON-COMPLIANCE
     Dates: start: 20041112, end: 20050112
  4. CLOZARIL [Suspect]
     Dosage: 400 MG/D
     Dates: start: 20050711

REACTIONS (4)
  - APPENDICECTOMY [None]
  - ASTHENIA [None]
  - SEDATION [None]
  - UNRESPONSIVE TO VERBAL STIMULI [None]
